FAERS Safety Report 8505473-0 (Version None)
Quarter: 2012Q3

REPORT INFORMATION
  Report Type: 
  Country: None (occurrence: None)
  Receive Date: 20120712
  Receipt Date: 20120709
  Transmission Date: 20120928
  Serious: Yes (Congenital Anomaly, Other)
  Sender: FDA-Public Use
  Company Number: US-PFIZER INC-2012162449

PATIENT
  Sex: Male

DRUGS (2)
  1. SERTRALINE HYDROCHLORIDE [Suspect]
     Indication: DEPRESSION
     Dosage: UNK
     Route: 064
  2. ZOLOFT [Suspect]
     Indication: DEPRESSION
     Dosage: UNK
     Route: 064

REACTIONS (7)
  - MATERNAL EXPOSURE TIMING UNSPECIFIED [None]
  - SKULL MALFORMATION [None]
  - CLEFT PALATE [None]
  - LIMB MALFORMATION [None]
  - NEONATAL RESPIRATORY DISTRESS SYNDROME [None]
  - CONGENITAL CARDIOVASCULAR ANOMALY [None]
  - HEART DISEASE CONGENITAL [None]
